FAERS Safety Report 8840536 (Version 2)
Quarter: 2015Q3

REPORT INFORMATION
  Report Type: Report from Study
  Country: US (occurrence: US)
  Receive Date: 20121015
  Receipt Date: 20150701
  Transmission Date: 20151125
  Serious: Yes (Death)
  Sender: FDA-Public Use
  Company Number: US-ROCHE-1117012

PATIENT
  Age: 53 Year
  Sex: Female

DRUGS (9)
  1. NUTROPIN [Suspect]
     Active Substance: SOMATROPIN
     Indication: PITUITARY INFARCTION
  2. NUTROPIN [Suspect]
     Active Substance: SOMATROPIN
     Indication: POSTPARTUM HYPOPITUITARISM
  3. NUTROPIN [Suspect]
     Active Substance: SOMATROPIN
     Indication: HYPOPITUITARISM
     Dosage: 0.4 MG/ML INJECTION
     Route: 058
  4. NUTROPIN [Suspect]
     Active Substance: SOMATROPIN
     Indication: HYPOPITUITARISM
  5. DESMOPRESSIN ACETATE. [Concomitant]
     Active Substance: DESMOPRESSIN ACETATE
     Route: 048
  6. SYNTHROID [Concomitant]
     Active Substance: LEVOTHYROXINE SODIUM
     Route: 048
  7. NUTROPIN [Suspect]
     Active Substance: SOMATROPIN
     Indication: HYPOPITUITARISM
  8. FLORINEF ACETATE [Concomitant]
     Active Substance: FLUDROCORTISONE ACETATE
     Route: 048
  9. DEXAMETHASONE. [Concomitant]
     Active Substance: DEXAMETHASONE

REACTIONS (51)
  - Fatigue [Unknown]
  - Chest pain [Unknown]
  - Nausea [Unknown]
  - Abdominal pain [Unknown]
  - Nocturia [Unknown]
  - Joint swelling [Unknown]
  - Paraesthesia [Unknown]
  - Thirst [Unknown]
  - Dizziness [Unknown]
  - Myalgia [Unknown]
  - Musculoskeletal stiffness [Unknown]
  - Depression [Unknown]
  - Vision blurred [Unknown]
  - Epistaxis [Unknown]
  - Tinnitus [Unknown]
  - Peripheral swelling [Unknown]
  - Arthritis [Unknown]
  - Muscular weakness [Unknown]
  - Tremor [Unknown]
  - Malaise [Unknown]
  - Dyspnoea exertional [Unknown]
  - Impaired healing [Unknown]
  - Hyperhidrosis [Unknown]
  - Photophobia [Unknown]
  - Sleep disorder [Unknown]
  - Decreased appetite [Unknown]
  - Headache [Unknown]
  - Alopecia [Unknown]
  - Haemorrhage [Unknown]
  - Death [Fatal]
  - Syncope [Unknown]
  - Urinary hesitation [Unknown]
  - Back pain [Unknown]
  - Asthenia [Unknown]
  - Dry skin [Unknown]
  - Meningitis [Unknown]
  - Weight increased [Unknown]
  - Nocturnal dyspnoea [Unknown]
  - Muscle spasms [Unknown]
  - Chest discomfort [Unknown]
  - Urinary incontinence [Unknown]
  - Arthralgia [Unknown]
  - Hypoaesthesia [Unknown]
  - Fall [Unknown]
  - Lip discolouration [Unknown]
  - Nail discolouration [Unknown]
  - Haemoptysis [Unknown]
  - Wheezing [Unknown]
  - Abdominal distension [Unknown]
  - Balance disorder [Unknown]
  - Amnesia [Unknown]

NARRATIVE: CASE EVENT DATE: 20061011
